FAERS Safety Report 8340613-8 (Version None)
Quarter: 2012Q2

REPORT INFORMATION
  Report Type: 
  Country: None (occurrence: None)
  Receive Date: 20120507
  Receipt Date: 20120502
  Transmission Date: 20120825
  Serious: Yes (Hospitalization)
  Sender: FDA-Public Use
  Company Number: US-B.I. PHARMACEUTICALS,INC./RIDGEFIELD-2012-BP-07407BP

PATIENT
  Sex: Female
  Weight: 64.2 kg

DRUGS (12)
  1. LEVEMIR [Concomitant]
     Indication: TYPE 2 DIABETES MELLITUS
     Route: 058
     Dates: start: 20110101
  2. SIMVASTATIN [Concomitant]
  3. AGGRENOX [Suspect]
     Indication: TRANSIENT ISCHAEMIC ATTACK
  4. AGGRENOX [Suspect]
     Indication: CEREBROVASCULAR ACCIDENT PROPHYLAXIS
     Route: 048
     Dates: start: 20111230
  5. AGGRENOX [Suspect]
     Indication: CAROTID ARTERY STENOSIS
  6. KEPPRA [Concomitant]
  7. TAMOXIFEN CITRATE [Concomitant]
  8. NORCO [Concomitant]
     Indication: NEURALGIA
     Route: 048
  9. SUPPLEMENTS [Concomitant]
     Indication: SUPPLEMENTATION THERAPY
  10. LEVOTHYROXINE SODIUM [Concomitant]
  11. VITAMIN TAB [Concomitant]
     Indication: VITAMIN SUPPLEMENTATION
  12. GABAPENTIN [Concomitant]
     Indication: NEUROPATHY PERIPHERAL
     Route: 048

REACTIONS (4)
  - FALL [None]
  - BLOOD GLUCOSE DECREASED [None]
  - DEHYDRATION [None]
  - SYNCOPE [None]
